FAERS Safety Report 22236986 (Version 1)
Quarter: 2023Q2

REPORT INFORMATION
  Report Type: Report from Study
  Country: CA (occurrence: CA)
  Receive Date: 20230421
  Receipt Date: 20230421
  Transmission Date: 20230722
  Serious: Yes (Other)
  Sender: FDA-Public Use
  Company Number: CA-JNJFOC-20230337079

PATIENT
  Sex: Female

DRUGS (2)
  1. REMICADE [Suspect]
     Active Substance: INFLIXIMAB
     Indication: Product used for unknown indication
     Dosage: THERAPY START DATE MENTIONED AS 14-MAR-2023
     Route: 042
  2. PREDNISONE [Concomitant]
     Active Substance: PREDNISONE
     Indication: Product used for unknown indication
     Dosage: PATIENT HAD STOPPED PREDNISONE RIGHT BEFORE HER LAST INFUSION
     Route: 065

REACTIONS (2)
  - Colitis [Unknown]
  - Chest pain [Unknown]
